FAERS Safety Report 7748779-5 (Version None)
Quarter: 2011Q3

REPORT INFORMATION
  Report Type: 
  Country: None (occurrence: None)
  Receive Date: 20110913
  Receipt Date: 20110913
  Transmission Date: 20111222
  Serious: No
  Sender: FDA-Public Use
  Company Number: None

PATIENT
  Age: 74 Year
  Sex: Male
  Weight: 65.5 kg

DRUGS (2)
  1. FENTANYL-100 [Suspect]
     Dosage: ONCE
     Route: 042
  2. DILAUDID [Suspect]
     Indication: PROCEDURAL PAIN
     Dosage: DILAUDID 1.6 MG ONCE IV
     Route: 042
     Dates: start: 20110317

REACTIONS (2)
  - RESPIRATORY DEPRESSION [None]
  - SLOW RESPONSE TO STIMULI [None]
